FAERS Safety Report 10196865 (Version 1)
Quarter: 2014Q2

REPORT INFORMATION
  Report Type: Report from Study
  Country: US (occurrence: US)
  Receive Date: 20140527
  Receipt Date: 20140527
  Transmission Date: 20141212
  Serious: No
  Sender: FDA-Public Use
  Company Number: US-ALEXION-A201402032

PATIENT
  Sex: 0

DRUGS (8)
  1. SOLIRIS [Suspect]
     Indication: PAROXYSMAL NOCTURNAL HAEMOGLOBINURIA
     Dosage: 900 MG, Q2W
     Route: 042
     Dates: start: 20070910
  2. FLORINEF [Concomitant]
     Indication: STEROID THERAPY
     Dosage: UNK
     Route: 065
     Dates: start: 20010101
  3. VYTORIN [Concomitant]
     Indication: HYPERLIPIDAEMIA
     Dosage: UNK
     Route: 065
     Dates: start: 20010101
  4. COREG [Concomitant]
     Indication: HYPERTENSION
     Dosage: UNK
     Route: 065
     Dates: start: 20100101
  5. CORTISONE [Concomitant]
     Indication: STEROID THERAPY
     Dosage: UNK
     Route: 065
     Dates: start: 20100101
  6. LASIX                              /00032601/ [Concomitant]
     Indication: DIURETIC THERAPY
     Dosage: UNK, QD
     Route: 065
     Dates: start: 20100101
  7. LOVENOX [Concomitant]
     Indication: ANTICOAGULANT THERAPY
     Dosage: UNK UNK, QD
     Route: 065
     Dates: start: 20100101
  8. INSULIN [Concomitant]
     Indication: PRODUCT USED FOR UNKNOWN INDICATION
     Dosage: UNK, QD
     Route: 065
     Dates: start: 20101207

REACTIONS (2)
  - Peripheral artery bypass [Not Recovered/Not Resolved]
  - Pain [Not Recovered/Not Resolved]
